FAERS Safety Report 11964845 (Version 1)
Quarter: 2016Q1

REPORT INFORMATION
  Report Type: Spontaneous
  Country: US (occurrence: None)
  Receive Date: 20160122
  Receipt Date: 20160122
  Transmission Date: 20160526
  Serious: Yes (Other)
  Sender: FDA-Public Use
  Company Number: None

PATIENT
  Age: 35 Year
  Sex: Female
  Weight: 240 kg

DRUGS (3)
  1. RISPERIDONE. [Suspect]
     Active Substance: RISPERIDONE
     Indication: DEPRESSION
     Dosage: 60
     Route: 048
     Dates: start: 20150710
  2. ONE A DAY VITAMINS [Concomitant]
  3. RISPERIDONE. [Concomitant]
     Active Substance: RISPERIDONE

REACTIONS (9)
  - Weight increased [None]
  - Back pain [None]
  - Constipation [None]
  - Dizziness [None]
  - Abdominal pain upper [None]
  - Amenorrhoea [None]
  - Hormone level abnormal [None]
  - Muscular weakness [None]
  - Dyskinesia [None]

NARRATIVE: CASE EVENT DATE: 20151012
